FAERS Safety Report 5729842-7 (Version None)
Quarter: 2008Q2

REPORT INFORMATION
  Report Type: 
  Country: None (occurrence: None)
  Receive Date: 20080501
  Receipt Date: 20080415
  Transmission Date: 20081010
  Serious: Yes (Hospitalization, Other)
  Sender: FDA-Public Use
  Company Number: 2008S1006264

PATIENT
  Age: 27 Year
  Sex: Male

DRUGS (3)
  1. ZOLPIDEM [Suspect]
     Indication: DETOXIFICATION
     Dosage: 300 MG
     Route: 048
  2. ZOLPIDEM [Suspect]
     Indication: INSOMNIA
     Dosage: 300 MG
     Route: 048
  3. CARBAMAZEPINE (CARBAMAZEPHINE) [Concomitant]

REACTIONS (6)
  - AGITATION [None]
  - CONVULSION [None]
  - DRUG ABUSE [None]
  - DRUG DEPENDENCE [None]
  - HYPERACUSIS [None]
  - HYPERHIDROSIS [None]
